FAERS Safety Report 7103808-7 (Version None)
Quarter: 2010Q4

REPORT INFORMATION
  Report Type: 
  Country: None (occurrence: None)
  Receive Date: 20101115
  Receipt Date: 20101108
  Transmission Date: 20110411
  Serious: Yes (Hospitalization)
  Sender: FDA-Public Use
  Company Number: US-B.I. PHARMACEUTICALS,INC./RIDGEFIELD-2010-BP-12475BP

PATIENT
  Age: 40 Year
  Sex: Male

DRUGS (5)
  1. FLOMAX [Suspect]
     Indication: URINARY RETENTION
     Dosage: 0.4 MG
     Route: 048
     Dates: start: 20070101
  2. BONIVA [Concomitant]
     Indication: OSTEOPOROSIS
  3. DIGOXIN [Concomitant]
  4. KEPPRA [Concomitant]
     Indication: CONVULSION
  5. ALLEGRA [Concomitant]
     Indication: MULTIPLE ALLERGIES

REACTIONS (3)
  - DYSPHAGIA [None]
  - PNEUMONIA [None]
  - RESPIRATORY DISTRESS [None]
